FAERS Safety Report 15588086 (Version 1)
Quarter: 2018Q4

REPORT INFORMATION
  Report Type: Spontaneous
  Country: JP (occurrence: JP)
  Receive Date: 20181105
  Receipt Date: 20181105
  Transmission Date: 20190205
  Serious: Yes (Other)
  Sender: FDA-Public Use
  Company Number: JP-GILEAD-2016-0200278

PATIENT
  Age: 65 Year
  Sex: Male

DRUGS (4)
  1. REBETOL [Suspect]
     Active Substance: RIBAVIRIN
     Indication: CHRONIC HEPATITIS C
  2. SOVALDI [Suspect]
     Active Substance: SOFOSBUVIR
     Indication: CHRONIC HEPATITIS C
  3. SOVALDI [Suspect]
     Active Substance: SOFOSBUVIR
     Indication: HEPATITIS C
     Dosage: 400 MG/DAY
     Route: 048
     Dates: start: 20150928, end: 20151220
  4. REBETOL [Suspect]
     Active Substance: RIBAVIRIN
     Indication: HEPATITIS C
     Dosage: 1000 MG/DAY
     Route: 048
     Dates: start: 20150928, end: 20151220

REACTIONS (6)
  - Blood uric acid increased [Not Recovered/Not Resolved]
  - Red blood cell count increased [Unknown]
  - Haemoglobin increased [Not Recovered/Not Resolved]
  - Immune thrombocytopenic purpura [Unknown]
  - Platelet count decreased [Recovered/Resolved]
  - Blood albumin increased [Not Recovered/Not Resolved]

NARRATIVE: CASE EVENT DATE: 20160118
